FAERS Safety Report 11623778 (Version 1)
Quarter: 2015Q4

REPORT INFORMATION
  Report Type: Spontaneous
  Country: US (occurrence: US)
  Receive Date: 20151013
  Receipt Date: 20151013
  Transmission Date: 20160304
  Serious: No
  Sender: FDA-Public Use
  Company Number: US-JNJFOC-20141214980

PATIENT
  Age: 86 Year
  Sex: Female

DRUGS (5)
  1. UNKNOWN CHOLESTEROL MEDICATION [Concomitant]
     Active Substance: UNSPECIFIED INGREDIENT
     Indication: BLOOD CHOLESTEROL INCREASED
     Dosage: YEARS
     Route: 065
  2. HEART MEDICATION (UNKNOWN) [Concomitant]
     Indication: CARDIAC DISORDER
     Dosage: YEARS
     Route: 065
  3. HIGH BLOOD PRESSURE MEDICATIONS, NOS [Concomitant]
     Indication: HYPERTENSION
     Dosage: YEARS
     Route: 065
  4. TYLENOL EXTRA STRENGTH [Suspect]
     Active Substance: ACETAMINOPHEN
     Indication: SCIATICA
     Dosage: 2 CAPLETS
     Route: 048
     Dates: end: 20141217
  5. LASIX [Concomitant]
     Active Substance: FUROSEMIDE
     Indication: DIURETIC THERAPY
     Dosage: ONE DAILY, YEARS
     Route: 065

REACTIONS (4)
  - Inappropriate schedule of drug administration [Unknown]
  - Drug ineffective for unapproved indication [Unknown]
  - Product label issue [Unknown]
  - Off label use [Unknown]
